FAERS Safety Report 11776363 (Version 1)
Quarter: 2015Q4

REPORT INFORMATION
  Report Type: Spontaneous
  Country: US (occurrence: US)
  Receive Date: 20151125
  Receipt Date: 20151125
  Transmission Date: 20160304
  Serious: No
  Sender: FDA-Public Use
  Company Number: US-DRREDDYS-USA/USA/15/0053589

PATIENT
  Age: 54 Year
  Sex: Female

DRUGS (1)
  1. SUMATRIPTAN INJECTION USP, 6 MG/0.5 ML [Suspect]
     Active Substance: SUMATRIPTAN
     Indication: HEADACHE
     Route: 058
     Dates: start: 201506

REACTIONS (1)
  - Product physical issue [Unknown]
